FAERS Safety Report 12156043 (Version 1)
Quarter: 2016Q1

REPORT INFORMATION
  Report Type: Spontaneous
  Country: US (occurrence: US)
  Receive Date: 20160307
  Receipt Date: 20160307
  Transmission Date: 20160526
  Serious: Yes (Hospitalization, Other)
  Sender: FDA-Public Use
  Company Number: US-SA-2016SA040748

PATIENT
  Age: 77 Year
  Sex: Female

DRUGS (1)
  1. LANTUS SOLOSTAR [Suspect]
     Active Substance: INSULIN GLARGINE
     Indication: TYPE 2 DIABETES MELLITUS
     Dosage: DOSE:30 UNIT(S)
     Route: 065
     Dates: start: 2013

REACTIONS (7)
  - Gait disturbance [Unknown]
  - Cardiac pacemaker insertion [Unknown]
  - Fall [Unknown]
  - Cardiac operation [Unknown]
  - Off label use [Unknown]
  - Wrong technique in product usage process [Unknown]
  - Visual impairment [Unknown]

NARRATIVE: CASE EVENT DATE: 201508
